FAERS Safety Report 18344117 (Version 2)
Quarter: 2020Q4

REPORT INFORMATION
  Report Type: Report from Study
  Country: CO (occurrence: CO)
  Receive Date: 20201005
  Receipt Date: 20201019
  Transmission Date: 20210114
  Serious: No
  Sender: FDA-Public Use
  Company Number: NVSC2020CO266148

PATIENT
  Age: 73 Year
  Sex: Female
  Weight: 48 kg

DRUGS (6)
  1. LEVOTHYROXINE. [Concomitant]
     Active Substance: LEVOTHYROXINE
     Indication: HYPOTHYROIDISM
     Dosage: 50 MG, QD
     Route: 065
  2. ENALAPRIL [Concomitant]
     Active Substance: ENALAPRIL
     Indication: HYPERTENSION
     Dosage: 20 MG, Q12H (EVERY 12 HOURS)
     Route: 065
  3. ESOMEPRAZOLE. [Suspect]
     Active Substance: ESOMEPRAZOLE MAGNESIUM
     Indication: GASTRITIS
     Dosage: 40 MG, QD
     Route: 048
  4. KISQALI [Suspect]
     Active Substance: RIBOCICLIB
     Indication: BREAST CANCER
     Dosage: 600 MG, QD (TABLET OF 200 MG)
     Route: 048
     Dates: start: 202007
  5. FULVESTRANT. [Suspect]
     Active Substance: FULVESTRANT
     Indication: BREAST CANCER
     Dosage: UNK (MONTHLY)
     Route: 030
     Dates: start: 202007
  6. FEMARA [Suspect]
     Active Substance: LETROZOLE
     Indication: BREAST CANCER
     Dosage: 2.5 MG, QD
     Route: 048
     Dates: start: 201808, end: 202007

REACTIONS (11)
  - Constipation [Recovering/Resolving]
  - Alopecia [Recovering/Resolving]
  - Rhinitis [Not Recovered/Not Resolved]
  - Breast inflammation [Unknown]
  - Rhinorrhoea [Unknown]
  - Breast enlargement [Recovering/Resolving]
  - Breast disorder [Unknown]
  - Breast discolouration [Recovered/Resolved]
  - Chills [Unknown]
  - Off label use [Unknown]
  - Asthenia [Recovering/Resolving]

NARRATIVE: CASE EVENT DATE: 202008
